FAERS Safety Report 4802877-4 (Version None)
Quarter: 2005Q4

REPORT INFORMATION
  Report Type: 
  Country: None (occurrence: None)
  Receive Date: 20051013
  Receipt Date: 20050928
  Transmission Date: 20060501
  Serious: Yes (Death, Life-Threatening, Hospitalization, Other)
  Sender: FDA-Public Use
  Company Number: 05-02-06334

PATIENT
  Age: 50 Year
  Sex: Male

DRUGS (1)
  1. CETUXIMAB (CETUXIMAB) [Suspect]
     Indication: NON-SMALL CELL LUNG CANCER METASTATIC
     Dosage: I.V.
     Route: 042
     Dates: start: 20050916, end: 20050916

REACTIONS (8)
  - ANAPHYLACTIC SHOCK [None]
  - BRAIN DAMAGE [None]
  - DIALYSIS [None]
  - ELECTROENCEPHALOGRAM ABNORMAL [None]
  - HYPOXIC ENCEPHALOPATHY [None]
  - INFUSION RELATED REACTION [None]
  - RENAL FAILURE [None]
  - SEPSIS [None]
